FAERS Safety Report 5258908-3 (Version None)
Quarter: 2007Q1

REPORT INFORMATION
  Report Type: 
  Country: None (occurrence: None)
  Receive Date: 20070308
  Receipt Date: 20070226
  Transmission Date: 20070707
  Serious: Yes (Hospitalization)
  Sender: FDA-Public Use
  Company Number: GB-GLAXOSMITHKLINE-B0456990A

PATIENT
  Age: 38 Year
  Sex: Female

DRUGS (2)
  1. NIQUITIN CQ 21MG [Suspect]
     Indication: SMOKING CESSATION THERAPY
     Dosage: 21MG PER DAY
     Route: 062
     Dates: start: 20070120, end: 20070130
  2. ASPIRIN [Concomitant]

REACTIONS (5)
  - ANGER [None]
  - CHEST PAIN [None]
  - NICOTINE DEPENDENCE [None]
  - OEDEMA PERIPHERAL [None]
  - PAIN IN EXTREMITY [None]
